FAERS Safety Report 17195738 (Version 1)
Quarter: 2019Q4

REPORT INFORMATION
  Report Type: Spontaneous
  Country: US (occurrence: US)
  Receive Date: 20191202
  Receipt Date: 20191202
  Transmission Date: 20200122
  Serious: No
  Sender: FDA-Public Use
  Company Number: None

PATIENT
  Age: 10 Year
  Sex: Female
  Weight: 35.38 kg

DRUGS (1)
  1. BASIC CARE ACID REDUCER 150 [Suspect]
     Active Substance: RANITIDINE HYDROCHLORIDE
     Indication: GASTROOESOPHAGEAL REFLUX DISEASE
     Route: 048
     Dates: start: 201909, end: 201910

REACTIONS (3)
  - Functional gastrointestinal disorder [None]
  - Abdominal pain upper [None]
  - Pollakiuria [None]
